FAERS Safety Report 5071029-8 (Version None)
Quarter: 2006Q3

REPORT INFORMATION
  Report Type: 
  Country: None (occurrence: None)
  Receive Date: 20060804
  Receipt Date: 20060103
  Transmission Date: 20061208
  Serious: No
  Sender: FDA-Public Use
  Company Number: US-GLAXOSMITHKLINE-A0587429A

PATIENT
  Age: 47 Year
  Sex: Female

DRUGS (3)
  1. NICORETTE [Suspect]
     Dates: start: 20060102
  2. CYMBALTA [Concomitant]
  3. DESYREL [Concomitant]

REACTIONS (9)
  - ABDOMINAL PAIN UPPER [None]
  - BACK PAIN [None]
  - CHEST DISCOMFORT [None]
  - COLD SWEAT [None]
  - DIARRHOEA [None]
  - DYSPNOEA [None]
  - HYPERHIDROSIS [None]
  - MUSCLE SPASMS [None]
  - TREMOR [None]
